FAERS Safety Report 5145300-5 (Version None)
Quarter: 2006Q4

REPORT INFORMATION
  Report Type: 
  Country: None (occurrence: None)
  Receive Date: 20061101
  Receipt Date: 20061019
  Transmission Date: 20070319
  Serious: Yes (Death)
  Sender: FDA-Public Use
  Company Number: 2006-05477

PATIENT
  Age: 13 Day
  Sex: Male

DRUGS (1)
  1. ACETAMINOPHEN/CODEINE PHOSPHATE (WATSON LABORATORIES)(CODEINE PHOSPHAT [Suspect]
     Indication: PROCEDURAL PAIN
     Dosage: SEE IMAGE
     Dates: start: 20050401

REACTIONS (3)
  - DEATH NEONATAL [None]
  - DRUG EXPOSURE VIA BREAST MILK [None]
  - THERAPEUTIC AGENT TOXICITY [None]
